FAERS Safety Report 7983410-5 (Version None)
Quarter: 2011Q4

REPORT INFORMATION
  Report Type: 
  Country: None (occurrence: None)
  Receive Date: 20111215
  Receipt Date: 20111206
  Transmission Date: 20120403
  Serious: Yes (Other)
  Sender: FDA-Public Use
  Company Number: US-ASTRAZENECA-2011SE74100

PATIENT
  Age: 55 Year
  Sex: Female
  Weight: 100.7 kg

DRUGS (4)
  1. SYMBICORT [Suspect]
     Dosage: 2 PUFFS TWICE DAILY
     Route: 055
  2. PRILOSEC [Suspect]
     Route: 048
  3. SPIRIVA [Concomitant]
  4. DUONEBS [Concomitant]
     Dosage: 4 TIMES DAILY

REACTIONS (10)
  - DYSPNOEA [None]
  - CHEST DISCOMFORT [None]
  - DRUG INEFFECTIVE [None]
  - OEDEMA [None]
  - WHEEZING [None]
  - HYPERTENSION [None]
  - COUGH [None]
  - REACTIVE AIRWAYS DYSFUNCTION SYNDROME [None]
  - CHEST PAIN [None]
  - SLEEP APNOEA SYNDROME [None]
